FAERS Safety Report 21986353 (Version 1)
Quarter: 2023Q1

REPORT INFORMATION
  Report Type: Spontaneous
  Country: US (occurrence: None)
  Receive Date: 20230210
  Receipt Date: 20230210
  Transmission Date: 20230418
  Serious: Yes (Hospitalization)
  Sender: FDA-Public Use
  Company Number: None

PATIENT
  Sex: Male

DRUGS (1)
  1. LENALIDOMIDE [Suspect]
     Active Substance: LENALIDOMIDE
     Indication: Plasma cell myeloma
     Dosage: 5MG 3 TIMES A WEEK ORAL?
     Route: 048
     Dates: start: 20230123

REACTIONS (5)
  - Rhinovirus infection [None]
  - Pneumonia [None]
  - Dyspnoea [None]
  - Cough [None]
  - Therapy interrupted [None]
